FAERS Safety Report 13524241 (Version 1)
Quarter: 2017Q2

REPORT INFORMATION
  Report Type: Spontaneous
  Country: DE (occurrence: DE)
  Receive Date: 20170508
  Receipt Date: 20170508
  Transmission Date: 20170830
  Serious: Yes (Other)
  Sender: FDA-Public Use
  Company Number: DE-MEDA-2013060012

PATIENT
  Age: 31 Year
  Sex: Female
  Weight: 50 kg

DRUGS (2)
  1. ALLERGODIL DUO-AT (BATCH: 0694793) [Suspect]
     Active Substance: AZELASTINE HYDROCHLORIDE
     Indication: CONJUNCTIVITIS ALLERGIC
     Route: 047
     Dates: start: 20130507, end: 20130507
  2. PREDNI-POS 1% [Concomitant]
     Active Substance: PREDNISOLONE ACETATE
     Dates: start: 20130507

REACTIONS (8)
  - Eye inflammation [Recovering/Resolving]
  - Hypersensitivity [None]
  - Erythema of eyelid [Recovering/Resolving]
  - Conjunctival hyperaemia [Recovering/Resolving]
  - Eyelid oedema [Recovering/Resolving]
  - Application site pruritus [Recovering/Resolving]
  - Eye swelling [Recovering/Resolving]
  - Application site pain [Recovering/Resolving]

NARRATIVE: CASE EVENT DATE: 20130507
